FAERS Safety Report 23032572 (Version 2)
Quarter: 2023Q4

REPORT INFORMATION
  Report Type: Spontaneous
  Country: CA (occurrence: CA)
  Receive Date: 20231005
  Receipt Date: 20231124
  Transmission Date: 20240109
  Serious: Yes (Other)
  Sender: FDA-Public Use
  Company Number: CA-PFIZER INC-202300310939

PATIENT
  Age: 5 Year

DRUGS (2)
  1. RUXIENCE [Suspect]
     Active Substance: RITUXIMAB-PVVR
     Indication: Nephrotic syndrome
     Dosage: 400MG EVERY 6 MONTHS
     Route: 042
     Dates: start: 2023
  2. RUXIENCE [Suspect]
     Active Substance: RITUXIMAB-PVVR
     Dosage: 400MG EVERY 6 MONTHS
     Route: 042
     Dates: start: 2023

REACTIONS (3)
  - Nephrotic syndrome [Not Recovered/Not Resolved]
  - Off label use [Unknown]
  - Off label use [Unknown]

NARRATIVE: CASE EVENT DATE: 20230101
